FAERS Safety Report 16661049 (Version 1)
Quarter: 2019Q3

REPORT INFORMATION
  Report Type: Spontaneous
  Country: IN (occurrence: IN)
  Receive Date: 20190802
  Receipt Date: 20190802
  Transmission Date: 20191004
  Serious: Yes (Hospitalization)
  Sender: FDA-Public Use
  Company Number: IN-TORRENT-00002307

PATIENT
  Age: 20 Year
  Sex: Female

DRUGS (2)
  1. LEVETIRACETAM. [Concomitant]
     Active Substance: LEVETIRACETAM
     Indication: MIGRAINE PROPHYLAXIS
     Dosage: SINCE THE LAST EIGHT DAYS
  2. TOPIRAMATE. [Suspect]
     Active Substance: TOPIRAMATE
     Indication: MIGRAINE PROPHYLAXIS
     Dosage: LAST EIGHT DAYS

REACTIONS (3)
  - Angle closure glaucoma [Recovered/Resolved]
  - Myopia [Recovered/Resolved]
  - Choroidal effusion [Recovered/Resolved]
